FAERS Safety Report 20094343 (Version 4)
Quarter: 2022Q4

REPORT INFORMATION
  Report Type: Spontaneous
  Country: US (occurrence: US)
  Receive Date: 20211122
  Receipt Date: 20221004
  Transmission Date: 20230113
  Serious: Yes (Death, Other)
  Sender: FDA-Public Use
  Company Number: US-AMGEN-USASP2021178036

PATIENT

DRUGS (3)
  1. EPOETIN ALFA [Suspect]
     Active Substance: ERYTHROPOIETIN
     Indication: Nephrogenic anaemia
     Dosage: 1500-60,000 IU (THREE TIMES WEEKLY OR ONCE WEEKLY)
     Route: 065
  2. DAPRODUSTAT [Concomitant]
     Active Substance: DAPRODUSTAT
     Dosage: 2-48 MG, 3 TIMES/WK
  3. IRON [Concomitant]
     Active Substance: IRON

REACTIONS (13)
  - Gastrointestinal haemorrhage [Unknown]
  - Pneumonia [Unknown]
  - Cardiac failure [Unknown]
  - Neoplasm malignant [Unknown]
  - Vascular access site thrombosis [Unknown]
  - Embolism [Unknown]
  - Arteriovenous fistula thrombosis [Unknown]
  - Myocardial infarction [Unknown]
  - Hypertension [Unknown]
  - Cardiac disorder [Fatal]
  - Death [Fatal]
  - Blood pressure increased [Unknown]
  - Adverse event [Unknown]
